FAERS Safety Report 8241759 (Version 2)
Quarter: 2013Q1

REPORT INFORMATION
  Report Type: Spontaneous
  Country: US (occurrence: US)
  Receive Date: 20111111
  Receipt Date: 20130220
  Transmission Date: 20140127
  Serious: Yes (Hospitalization, Other)
  Sender: FDA-Public Use
  Company Number: US-ROCHE-1010262

PATIENT
  Sex: Female
  Weight: 38.59 kg

DRUGS (2)
  1. ACCUTANE [Suspect]
     Indication: ACNE
     Route: 065
     Dates: start: 1980
  2. ACCUTANE [Suspect]
     Route: 065
     Dates: start: 1985, end: 1986

REACTIONS (6)
  - Injury [Unknown]
  - Crohn^s disease [Unknown]
  - Inflammatory bowel disease [Unknown]
  - Depression [Not Recovered/Not Resolved]
  - Intestinal obstruction [Unknown]
  - Irritable bowel syndrome [Unknown]
